FAERS Safety Report 25273955 (Version 1)
Quarter: 2025Q2

REPORT INFORMATION
  Report Type: Spontaneous
  Country: US (occurrence: US)
  Receive Date: 20250506
  Receipt Date: 20250506
  Transmission Date: 20250716
  Serious: No
  Sender: ROCHE
  Company Number: US-ROCHE-10000272595

PATIENT

DRUGS (1)
  1. OCREVUS ZUNOVO [Suspect]
     Active Substance: HYALURONIDASE-OCSQ\OCRELIZUMAB
     Indication: Product used for unknown indication
     Route: 050

REACTIONS (3)
  - Contusion [Unknown]
  - Injection site discolouration [Unknown]
  - Fatigue [Unknown]
